FAERS Safety Report 5125195-6 (Version None)
Quarter: 2006Q4

REPORT INFORMATION
  Report Type: 
  Country: None (occurrence: None)
  Receive Date: 20061006
  Receipt Date: 20060926
  Transmission Date: 20070319
  Serious: Yes (Death)
  Sender: FDA-Public Use
  Company Number: WAES 0609USA07565

PATIENT

DRUGS (9)
  1. DEXAMETHASONE [Suspect]
     Indication: ACUTE LYMPHOCYTIC LEUKAEMIA
     Dosage: PO
     Route: 048
  2. ARA-C [Concomitant]
  3. ELSPAR [Concomitant]
  4. CYCLOPHOSPHAMIDE [Concomitant]
  5. DAUNORUBICIN HCL [Concomitant]
  6. FOLINIC ACID [Concomitant]
  7. HYDROCORTISONE ACETATE [Concomitant]
  8. METHOTREXATE [Concomitant]
  9. VINCRISTINE SULFATE [Concomitant]

REACTIONS (3)
  - BLAST CELL PROLIFERATION [None]
  - DRUG TOXICITY [None]
  - FUNGAL INFECTION [None]
